FAERS Safety Report 24145799 (Version 1)
Quarter: 2024Q3

REPORT INFORMATION
  Report Type: Report from Study
  Country: US (occurrence: US)
  Receive Date: 20240729
  Receipt Date: 20240729
  Transmission Date: 20241017
  Serious: No
  Sender: ACADIA PHARMACEUTICALS
  Company Number: US-ACADIA PHARMACEUTICALS INC.-ACA-2024-TRF-003240

PATIENT
  Sex: Female

DRUGS (3)
  1. DAYBUE [Suspect]
     Active Substance: TROFINETIDE
     Indication: Rett syndrome
     Dosage: 40 MILLILITER
  2. DAYBUE [Suspect]
     Active Substance: TROFINETIDE
     Dosage: 25 MILLILITER
  3. DAYBUE [Suspect]
     Active Substance: TROFINETIDE
     Dosage: LOWER DOSE

REACTIONS (3)
  - Underdose [Unknown]
  - Norovirus infection [Unknown]
  - Diarrhoea [Unknown]
